FAERS Safety Report 16924616 (Version 1)
Quarter: 2019Q4

REPORT INFORMATION
  Report Type: Report from Study
  Country: CA (occurrence: CA)
  Receive Date: 20191016
  Receipt Date: 20191016
  Transmission Date: 20200122
  Serious: Yes (Death)
  Sender: FDA-Public Use
  Company Number: CA-EMD SERONO-9121741

PATIENT

DRUGS (1)
  1. BAVENCIO [Suspect]
     Active Substance: AVELUMAB
     Indication: PRODUCT USED FOR UNKNOWN INDICATION
     Route: 042

REACTIONS (1)
  - Death [Fatal]
